FAERS Safety Report 5099280-1 (Version None)
Quarter: 2006Q3

REPORT INFORMATION
  Report Type: 
  Country: None (occurrence: None)
  Receive Date: 20060731
  Receipt Date: 20051108
  Transmission Date: 20061208
  Serious: Yes (Hospitalization)
  Sender: FDA-Public Use
  Company Number: US-2005-023426

PATIENT
  Age: 75 Year
  Sex: Female

DRUGS (5)
  1. MAGNEVIST [Suspect]
     Indication: NUCLEAR MAGNETIC RESONANCE IMAGING
     Dosage: 1 DOSE, INTRAVENOUS
     Route: 042
     Dates: start: 20051103, end: 20051103
  2. PRINIVIL [Concomitant]
  3. LOPRESSOR [Concomitant]
  4. HYDROCHLOROTHIAZIDE [Concomitant]
  5. FEMARA [Concomitant]

REACTIONS (2)
  - DIARRHOEA [None]
  - VOMITING [None]
